FAERS Safety Report 4723532-5 (Version None)
Quarter: 2005Q3

REPORT INFORMATION
  Report Type: 
  Country: None (occurrence: None)
  Receive Date: 20050725
  Receipt Date: 20050706
  Transmission Date: 20060218
  Serious: No
  Sender: FDA-Public Use
  Company Number: CN-NOVOPROD-245486

PATIENT
  Age: 52 Year
  Sex: Female
  Weight: 65 kg

DRUGS (1)
  1. NOVOMIX 30 FLEXPEN [Suspect]
     Indication: INSULIN-REQUIRING TYPE II DIABETES MELLITUS
     Dosage: 10 + 10 IU
     Dates: start: 20050527, end: 20050527

REACTIONS (4)
  - ERYTHEMA [None]
  - INJECTION SITE ERYTHEMA [None]
  - NAUSEA [None]
  - RASH PRURITIC [None]
